FAERS Safety Report 16552428 (Version 1)
Quarter: 2019Q3

REPORT INFORMATION
  Report Type: Report from Study
  Country: US (occurrence: US)
  Receive Date: 20190710
  Receipt Date: 20190710
  Transmission Date: 20191004
  Serious: Yes (Hospitalization)
  Sender: FDA-Public Use
  Company Number: US-EISAI MEDICAL RESEARCH-EC-2019-051198

PATIENT
  Sex: Male
  Weight: 95.25 kg

DRUGS (27)
  1. GABAPENTIN. [Concomitant]
     Active Substance: GABAPENTIN
  2. GLYBURIDE. [Concomitant]
     Active Substance: GLYBURIDE
  3. TRADJENTA [Concomitant]
     Active Substance: LINAGLIPTIN
  4. METOPROLOL. [Concomitant]
     Active Substance: METOPROLOL
  5. COLCHICINE. [Concomitant]
     Active Substance: COLCHICINE
  6. CODEINE-APAP [Concomitant]
  7. LISINOPRIL-HCTZ [Concomitant]
     Active Substance: HYDROCHLOROTHIAZIDE\LISINOPRIL
  8. TRAMADOL. [Concomitant]
     Active Substance: TRAMADOL
  9. LENVIMA [Suspect]
     Active Substance: LENVATINIB
     Route: 048
     Dates: start: 2019, end: 20190614
  10. HUMALOG [Concomitant]
     Active Substance: INSULIN LISPRO
  11. METHYLPREDNISOLONE. [Concomitant]
     Active Substance: METHYLPREDNISOLONE
  12. ELIQUIS [Concomitant]
     Active Substance: APIXABAN
  13. ROSUVASTATIN. [Concomitant]
     Active Substance: ROSUVASTATIN
  14. OMEPRAZOLE. [Concomitant]
     Active Substance: OMEPRAZOLE
  15. TURMERIC [Concomitant]
     Active Substance: HERBALS\TURMERIC
  16. AMLODIPINE [Concomitant]
     Active Substance: AMLODIPINE BESYLATE
  17. ALPHA LIPOIC ACID [Concomitant]
     Active Substance: .ALPHA.-LIPOIC ACID
  18. PREDNISONE. [Suspect]
     Active Substance: PREDNISONE
     Indication: PRODUCT USED FOR UNKNOWN INDICATION
     Dosage: DOSE AND FREQUENCY UNKNOWN
     Route: 065
  19. METFORMIN [Concomitant]
     Active Substance: METFORMIN HYDROCHLORIDE
  20. DOXYCYCLINE. [Concomitant]
     Active Substance: DOXYCYCLINE
  21. LEVOTHYROXINE SODIUM. [Concomitant]
     Active Substance: LEVOTHYROXINE SODIUM
  22. LENVIMA [Suspect]
     Active Substance: LENVATINIB
     Indication: HEPATOCELLULAR CARCINOMA
     Route: 048
     Dates: start: 20190118, end: 20190212
  23. CLINDAMYCIN. [Concomitant]
     Active Substance: CLINDAMYCIN
  24. FUROSEMIDE. [Concomitant]
     Active Substance: FUROSEMIDE
  25. MORPHINE [Concomitant]
     Active Substance: MORPHINE
  26. ALLOPURINOL. [Concomitant]
     Active Substance: ALLOPURINOL
  27. VANCOMYCIN [Concomitant]
     Active Substance: VANCOMYCIN

REACTIONS (19)
  - Gout [Recovering/Resolving]
  - Peripheral swelling [Unknown]
  - Oedema peripheral [Unknown]
  - Nausea [Unknown]
  - Hypothyroidism [Unknown]
  - Musculoskeletal chest pain [Unknown]
  - Skin fissures [Recovering/Resolving]
  - Hypotension [Unknown]
  - Blood pressure increased [Not Recovered/Not Resolved]
  - Arthralgia [Recovering/Resolving]
  - Joint swelling [Unknown]
  - Taste disorder [Unknown]
  - Dehydration [Unknown]
  - Pain in extremity [Unknown]
  - Headache [Unknown]
  - Blood glucose abnormal [Recovering/Resolving]
  - Acute kidney injury [Unknown]
  - Erythema [Unknown]
  - Decreased appetite [Unknown]

NARRATIVE: CASE EVENT DATE: 2019
